FAERS Safety Report 9970054 (Version 2)
Quarter: 2014Q1

REPORT INFORMATION
  Report Type: Spontaneous
  Country: US (occurrence: US)
  Receive Date: 20140306
  Receipt Date: 20140314
  Transmission Date: 20141002
  Serious: Yes (Other)
  Sender: FDA-Public Use
  Company Number: US-BAYER-2014-034652

PATIENT
  Age: 26 Year
  Sex: Female

DRUGS (4)
  1. YASMIN [Suspect]
     Dosage: UNK
     Dates: start: 200205, end: 201008
  2. OCELLA [Suspect]
     Dosage: UNK
     Dates: start: 201008, end: 20110218
  3. TRETINOIN [Concomitant]
  4. IBUPROFEN [Concomitant]

REACTIONS (7)
  - Deep vein thrombosis [None]
  - Injury [None]
  - Pain [None]
  - Emotional distress [None]
  - Pain [None]
  - General physical health deterioration [None]
  - Anxiety [None]
